FAERS Safety Report 18045372 (Version 1)
Quarter: 2020Q3

REPORT INFORMATION
  Report Type: Spontaneous
  Country: FR (occurrence: FR)
  Receive Date: 20200720
  Receipt Date: 20200720
  Transmission Date: 20201103
  Serious: Yes (Other)
  Sender: FDA-Public Use
  Company Number: FR-JNJFOC-20200712023

PATIENT
  Age: 34 Year
  Sex: Female

DRUGS (2)
  1. SEVREDOL [Suspect]
     Active Substance: MORPHINE
     Indication: SPINAL PAIN
     Route: 048
     Dates: start: 201503, end: 202001
  2. DUROGESIC [Suspect]
     Active Substance: FENTANYL
     Indication: SPINAL PAIN
     Route: 062
     Dates: start: 201507

REACTIONS (2)
  - Hepatocellular injury [Not Recovered/Not Resolved]
  - Cholestasis [Not Recovered/Not Resolved]

NARRATIVE: CASE EVENT DATE: 201611
